FAERS Safety Report 7733913-3 (Version None)
Quarter: 2011Q3

REPORT INFORMATION
  Report Type: 
  Country: None (occurrence: None)
  Receive Date: 20110907
  Receipt Date: 20110831
  Transmission Date: 20111222
  Serious: Yes (Other)
  Sender: FDA-Public Use
  Company Number: US-SANOFI-AVENTIS-2011SA034428

PATIENT
  Age: 83 Year
  Sex: Female
  Weight: 83.18 kg

DRUGS (4)
  1. AMBIEN [Suspect]
     Indication: SLEEP DISORDER
     Route: 048
     Dates: end: 20110110
  2. PLAVIX [Concomitant]
     Indication: PROPHYLAXIS
     Route: 048
  3. FUROSEMIDE [Concomitant]
     Indication: RENAL DISORDER
  4. AMBIEN [Suspect]
     Indication: INSOMNIA
     Route: 048
     Dates: end: 20110110

REACTIONS (12)
  - BALANCE DISORDER [None]
  - DRUG WITHDRAWAL SYNDROME [None]
  - GAIT DISTURBANCE [None]
  - NERVOUS SYSTEM DISORDER [None]
  - SLEEP TERROR [None]
  - ABNORMAL DREAMS [None]
  - INSOMNIA [None]
  - ABNORMAL BEHAVIOUR [None]
  - SUICIDE ATTEMPT [None]
  - SOMNAMBULISM [None]
  - ROAD TRAFFIC ACCIDENT [None]
  - DYSGRAPHIA [None]
